FAERS Safety Report 5450727-8 (Version None)
Quarter: 2007Q3

REPORT INFORMATION
  Report Type: 
  Country: None (occurrence: None)
  Receive Date: 20070911
  Receipt Date: 20070827
  Transmission Date: 20080115
  Serious: Yes (Life-Threatening, Hospitalization, Other)
  Sender: FDA-Public Use
  Company Number: 2007S1008109

PATIENT
  Age: 39 Year
  Sex: Male
  Weight: 101.6 kg

DRUGS (16)
  1. ENOXAPARIN SODIUM [Suspect]
     Indication: ACUTE CORONARY SYNDROME
     Dosage: 40 MG; DAILY
     Dates: start: 20070107, end: 20070107
  2. ENOXAPARIN SODIUM [Suspect]
     Indication: ELECTROCARDIOGRAM QRS COMPLEX
     Dosage: 40 MG; DAILY
     Dates: start: 20070107, end: 20070107
  3. ENOXAPARIN SODIUM [Suspect]
     Indication: THROMBOSIS PROPHYLAXIS
     Dosage: 40 MG; DAILY
     Dates: start: 20070107, end: 20070107
  4. ENOXAPARIN SODIUM [Suspect]
     Indication: ACUTE CORONARY SYNDROME
     Dosage: 60 MG; DAILY
     Dates: start: 20070108, end: 20070108
  5. ENOXAPARIN SODIUM [Suspect]
     Indication: ELECTROCARDIOGRAM QRS COMPLEX
     Dosage: 60 MG; DAILY
     Dates: start: 20070108, end: 20070108
  6. ENOXAPARIN SODIUM [Suspect]
     Indication: THROMBOSIS PROPHYLAXIS
     Dosage: 60 MG; DAILY
     Dates: start: 20070108, end: 20070108
  7. METOPROLOL TARTRATE [Suspect]
     Dosage: 25 MG; X1; ORAL
     Route: 048
     Dates: start: 20070107, end: 20070107
  8. ACETAMINOPHEN [Concomitant]
  9. ASPIRIN [Concomitant]
  10. PLAVIX [Concomitant]
  11. TRICOR [Concomitant]
  12. LEVOTHYROXINE SODIUM [Concomitant]
  13. NIACIN [Concomitant]
  14. ROSUVASTATIN [Concomitant]
  15. TRANDOLAPRIL [Concomitant]
  16. NITROGLYCERIN [Concomitant]

REACTIONS (8)
  - ANGINA PECTORIS [None]
  - BRADYCARDIA [None]
  - CARDIAC ARREST [None]
  - FEELING ABNORMAL [None]
  - HAEMOGLOBIN DECREASED [None]
  - PARAESTHESIA [None]
  - PROTHROMBIN TIME PROLONGED [None]
  - SYNCOPE [None]
